FAERS Safety Report 23747065 (Version 2)
Quarter: 2024Q2

REPORT INFORMATION
  Report Type: Spontaneous
  Country: DE (occurrence: None)
  Receive Date: 20240416
  Receipt Date: 20240503
  Transmission Date: 20240715
  Serious: Yes (Other)
  Sender: FDA-Public Use
  Company Number: 2024A087696

PATIENT
  Sex: Female

DRUGS (2)
  1. TAGRISSO [Suspect]
     Active Substance: OSIMERTINIB
     Indication: Adenocarcinoma
     Route: 048
     Dates: start: 201811, end: 202208
  2. SOTORASIB [Concomitant]
     Active Substance: SOTORASIB

REACTIONS (7)
  - Malignant neoplasm progression [Unknown]
  - Dyspnoea [Unknown]
  - Lymphangiosis carcinomatosa [Unknown]
  - General physical health deterioration [Unknown]
  - Weight increased [Unknown]
  - Pulse abnormal [Unknown]
  - Off label use [Unknown]
